FAERS Safety Report 9656097 (Version 2)
Quarter: 2013Q4

REPORT INFORMATION
  Report Type: Spontaneous
  Country: IT (occurrence: IT)
  Receive Date: 20131030
  Receipt Date: 20131114
  Transmission Date: 20140711
  Serious: Yes (Hospitalization)
  Sender: FDA-Public Use
  Company Number: PHHY2013IT122141

PATIENT
  Age: 75 Year
  Sex: Female

DRUGS (6)
  1. RASILEZ [Suspect]
     Indication: HYPERTENSION
     Dosage: 300 MG, DAILY
     Route: 048
     Dates: start: 20130925, end: 20131002
  2. TARGIN [Concomitant]
     Dosage: 7.5 MG, UNK
     Route: 048
  3. CARDIOASPIRIN [Concomitant]
     Dosage: 100 MG, UNK
  4. LIMPIDEX [Concomitant]
     Dosage: UNK UKN, UNK
  5. CONGESCOR [Concomitant]
     Dosage: UNK UKN, UNK
  6. MAALOX [Concomitant]
     Dosage: UNK UKN, UNK

REACTIONS (5)
  - Dry mouth [Recovering/Resolving]
  - Headache [Recovering/Resolving]
  - Hyperhidrosis [Recovering/Resolving]
  - Malaise [Recovering/Resolving]
  - Throat tightness [Recovering/Resolving]
